FAERS Safety Report 6504725-3 (Version None)
Quarter: 2009Q4

REPORT INFORMATION
  Report Type: 
  Country: None (occurrence: None)
  Receive Date: 20091218
  Receipt Date: 20090814
  Transmission Date: 20100525
  Serious: No
  Sender: FDA-Public Use
  Company Number: A0797634A

PATIENT
  Age: 36 Year
  Sex: Female

DRUGS (2)
  1. TRIZIVIR [Suspect]
     Indication: HIV INFECTION
     Dosage: 1TAB SINGLE DOSE
     Route: 048
     Dates: start: 20090718, end: 20090718
  2. NORVIR [Concomitant]

REACTIONS (6)
  - PRURITUS [None]
  - RASH [None]
  - SKIN BURNING SENSATION [None]
  - SKIN DISCOLOURATION [None]
  - THERMAL BURN [None]
  - URTICARIA [None]
